FAERS Safety Report 9048829 (Version 1)
Quarter: 2013Q1

REPORT INFORMATION
  Report Type: Spontaneous
  Country: US (occurrence: None)
  Receive Date: 20130116
  Receipt Date: 20130116
  Transmission Date: 20140127
  Serious: Yes (Death)
  Sender: FDA-Public Use
  Company Number: ANI_2013_1099439

PATIENT
  Age: 68 Year
  Sex: Male

DRUGS (2)
  1. METOCLOPRAMIDE [Suspect]
  2. OXYCODONE [Suspect]

REACTIONS (1)
  - Death [None]
